FAERS Safety Report 5049105-5 (Version None)
Quarter: 2006Q2

REPORT INFORMATION
  Report Type: 
  Country: None (occurrence: None)
  Receive Date: 20060601
  Receipt Date: 20060224
  Transmission Date: 20061013
  Serious: No
  Sender: FDA-Public Use
  Company Number: US200602005390

PATIENT
  Age: 49 Year
  Sex: Male

DRUGS (6)
  1. CYMBALTA [Suspect]
     Indication: DEPRESSION
     Dosage: 30 MG, DAILY (1/D)
     Dates: start: 20060222
  2. PRILOSEC [Concomitant]
  3. PRAVACHOL [Concomitant]
  4. IMITREX [Concomitant]
  5. AMBIEN [Concomitant]
  6. IBUPROFEN [Concomitant]

REACTIONS (1)
  - MIGRAINE [None]
